FAERS Safety Report 8021654-7 (Version None)
Quarter: 2012Q1

REPORT INFORMATION
  Report Type: 
  Country: None (occurrence: None)
  Receive Date: 20120104
  Receipt Date: 20111227
  Transmission Date: 20120608
  Serious: Yes (Other)
  Sender: FDA-Public Use
  Company Number: US-SANOFI-AVENTIS-2011SA077874

PATIENT
  Age: 71 Year
  Sex: Female
  Weight: 65.91 kg

DRUGS (12)
  1. ALLEGRA [Suspect]
     Route: 048
     Dates: start: 20110301
  2. LOSARTAN POTASSIUM [Concomitant]
     Dates: start: 20000101
  3. VITAMIN D [Concomitant]
  4. VITAMIN E [Concomitant]
  5. ALL OTHER THERAPEUTIC PRODUCTS [Concomitant]
  6. DIPHENHYDRAMINE HCL [Suspect]
     Dates: start: 20110101
  7. HYDROCHLOROTHIAZIDE [Concomitant]
     Dates: end: 20110901
  8. GLUCOVANCE [Concomitant]
     Dates: start: 19950101
  9. VITAMIN C [Concomitant]
  10. FEXOFENADINE HYDROCHLORIDE [Suspect]
  11. ALLEGRA [Suspect]
     Route: 048
  12. ALLEGRA [Suspect]

REACTIONS (13)
  - SOMNOLENCE [None]
  - PALPITATIONS [None]
  - TRANSIENT ISCHAEMIC ATTACK [None]
  - RASH [None]
  - FATIGUE [None]
  - OVERDOSE [None]
  - URTICARIA [None]
  - HYPOAESTHESIA [None]
  - ANGIOEDEMA [None]
  - NERVOUSNESS [None]
  - PRURITUS [None]
  - INSOMNIA [None]
  - DYSARTHRIA [None]
